FAERS Safety Report 25222205 (Version 2)
Quarter: 2025Q2

REPORT INFORMATION
  Report Type: Spontaneous
  Country: DE (occurrence: DE)
  Receive Date: 20250421
  Receipt Date: 20250424
  Transmission Date: 20250717
  Serious: Yes (Other)
  Sender: NOVARTIS
  Company Number: DE-SANDOZ-SDZ2025DE023478

PATIENT
  Sex: Female

DRUGS (4)
  1. TAMOXIFEN [Suspect]
     Active Substance: TAMOXIFEN
     Indication: Product used for unknown indication
     Route: 065
  2. TAMOXIFEN [Suspect]
     Active Substance: TAMOXIFEN
     Route: 065
  3. FEMARA [Suspect]
     Active Substance: LETROZOLE
     Indication: Product used for unknown indication
     Route: 065
  4. FEMARA [Suspect]
     Active Substance: LETROZOLE
     Route: 065

REACTIONS (14)
  - Sleep disorder [Unknown]
  - Vomiting [Unknown]
  - Pyrexia [Unknown]
  - Faeces discoloured [Unknown]
  - Liver function test increased [Unknown]
  - Fluid intake reduced [Recovering/Resolving]
  - Urine flow decreased [Unknown]
  - Muscle spasms [Unknown]
  - Nightmare [Unknown]
  - Drug intolerance [Unknown]
  - Asthenia [Unknown]
  - Weight increased [Unknown]
  - Fatigue [Unknown]
  - Nausea [Unknown]
